FAERS Safety Report 9319300 (Version 2)
Quarter: 2013Q2

REPORT INFORMATION
  Report Type: Spontaneous
  Country: US (occurrence: US)
  Receive Date: 20130530
  Receipt Date: 20130611
  Transmission Date: 20140414
  Serious: Yes (Other)
  Sender: FDA-Public Use
  Company Number: US-B.I. PHARMACEUTICALS,INC./RIDGEFIELD-2013-BI-14479BP

PATIENT
  Sex: Male

DRUGS (10)
  1. TRADJENTA [Suspect]
     Indication: TYPE 2 DIABETES MELLITUS
     Dosage: 5 MG
     Route: 048
     Dates: start: 20120709, end: 20130516
  2. CRESTOR [Concomitant]
     Indication: BLOOD CHOLESTEROL INCREASED
     Dosage: 20 MG
     Route: 048
  3. AZOR [Concomitant]
     Indication: HYPERTENSION
     Dosage: STRENGTH: 10 MG/40 MG; DAILY DOSE: 10 MG/40 MG
     Route: 048
  4. PLAVIX [Concomitant]
     Indication: CORONARY ARTERY DISEASE
     Dosage: 75 MG
     Route: 048
  5. ASPIRIN [Concomitant]
     Indication: CORONARY ARTERY DISEASE
     Dosage: 81 MG
     Route: 048
  6. ACTOS [Concomitant]
     Indication: TYPE 2 DIABETES MELLITUS
     Dosage: 30 MG
     Route: 048
  7. METFORMIN [Concomitant]
     Indication: TYPE 2 DIABETES MELLITUS
     Dosage: 2000 MG
     Route: 048
  8. METOPROLOL SUCCINATE [Concomitant]
     Indication: HYPERTENSION
     Dosage: 50 MG
     Route: 048
  9. PREVACID (OVER-THE-COUNTER) [Concomitant]
     Dosage: 50 MG
     Route: 048
  10. ADVAIR [Concomitant]
     Indication: CHRONIC OBSTRUCTIVE PULMONARY DISEASE
     Dosage: STRENGTH: 250MCG/50MCG; DAILY DOSE: 500MCG/100MCG
     Route: 055

REACTIONS (1)
  - Hepatic cancer [Not Recovered/Not Resolved]
